FAERS Safety Report 12211929 (Version 1)
Quarter: 2016Q1

REPORT INFORMATION
  Report Type: Spontaneous
  Country: TR (occurrence: TR)
  Receive Date: 20160325
  Receipt Date: 20160325
  Transmission Date: 20160526
  Serious: Yes (Hospitalization)
  Sender: FDA-Public Use
  Company Number: TR-ABBVIE-16P-161-1592215-00

PATIENT
  Age: 47 Year
  Sex: Male

DRUGS (1)
  1. TESTOGEL [Suspect]
     Active Substance: TESTOSTERONE
     Indication: ANDROGEN REPLACEMENT THERAPY
     Route: 065
     Dates: start: 2007

REACTIONS (6)
  - Irritability [Unknown]
  - Insomnia [Unknown]
  - Schizophrenia [Unknown]
  - Delusion [Unknown]
  - Soliloquy [Unknown]
  - Feeling abnormal [Unknown]
